FAERS Safety Report 19305961 (Version 3)
Quarter: 2021Q3

REPORT INFORMATION
  Report Type: Report from Study
  Country: CN (occurrence: CN)
  Receive Date: 20210525
  Receipt Date: 20210719
  Transmission Date: 20211014
  Serious: Yes (Other)
  Sender: FDA-Public Use
  Company Number: NVSC2021CN115442

PATIENT
  Age: 41 Year
  Sex: Female

DRUGS (3)
  1. SIPONIMOD [Suspect]
     Active Substance: SIPONIMOD
     Dosage: (5*2 MG) INTO 5*2 MG
     Route: 048
     Dates: start: 20210517
  2. SIPONIMOD [Suspect]
     Active Substance: SIPONIMOD
     Dosage: TITRATION ADMINISTRATION
     Route: 065
  3. SIPONIMOD [Suspect]
     Active Substance: SIPONIMOD
     Indication: MULTIPLE SCLEROSIS
     Dosage: (5*0.25 MG) INTO 5*2 MG
     Route: 048
     Dates: start: 20210513

REACTIONS (3)
  - Incorrect dose administered [Recovered/Resolved]
  - Pain [Unknown]
  - Headache [Unknown]

NARRATIVE: CASE EVENT DATE: 20210517
